FAERS Safety Report 7148016-9 (Version None)
Quarter: 2010Q4

REPORT INFORMATION
  Report Type: 
  Country: None (occurrence: None)
  Receive Date: 20101209
  Receipt Date: 20101202
  Transmission Date: 20110411
  Serious: Yes (Other)
  Sender: FDA-Public Use
  Company Number: BR-US-EMD SERONO, INC.-230340J09BRA

PATIENT
  Sex: Female

DRUGS (1)
  1. REBIF [Suspect]
     Indication: RELAPSING-REMITTING MULTIPLE SCLEROSIS
     Dates: start: 20081117, end: 20100101

REACTIONS (5)
  - CONVULSION [None]
  - HEADACHE [None]
  - INJECTION SITE ERYTHEMA [None]
  - NEOPLASM PROGRESSION [None]
  - SENSATION OF HEAVINESS [None]
